FAERS Safety Report 17873765 (Version 4)
Quarter: 2020Q3

REPORT INFORMATION
  Report Type: Spontaneous
  Country: US (occurrence: US)
  Receive Date: 20200609
  Receipt Date: 20200701
  Transmission Date: 20201103
  Serious: No
  Sender: FDA-Public Use
  Company Number: US-HTU-2020US020506

PATIENT
  Sex: Male

DRUGS (1)
  1. VALCHLOR [Suspect]
     Active Substance: MECHLORETHAMINE
     Indication: CUTANEOUS T-CELL LYMPHOMA
     Dosage: UNK, SINGLE
     Route: 061
     Dates: start: 202003, end: 20200413

REACTIONS (5)
  - Application site erosion [Recovering/Resolving]
  - Application site swelling [Recovering/Resolving]
  - Condition aggravated [Recovering/Resolving]
  - Application site pruritus [Recovered/Resolved]
  - Application site urticaria [Recovering/Resolving]

NARRATIVE: CASE EVENT DATE: 2020
